FAERS Safety Report 7051016-0 (Version None)
Quarter: 2010Q4

REPORT INFORMATION
  Report Type: 
  Country: None (occurrence: None)
  Receive Date: 20101019
  Receipt Date: 20101005
  Transmission Date: 20110411
  Serious: Yes (Other)
  Sender: FDA-Public Use
  Company Number: US-JNJFOC-20101002130

PATIENT
  Age: 14 Year
  Sex: Male

DRUGS (3)
  1. INFLIXIMAB, RECOMBINANT [Suspect]
     Indication: WEGENER'S GRANULOMATOSIS
     Route: 042
  2. METHOTREXATE [Concomitant]
     Indication: WEGENER'S GRANULOMATOSIS
  3. PREDNISONE [Concomitant]
     Indication: WEGENER'S GRANULOMATOSIS

REACTIONS (1)
  - DRUG INEFFECTIVE FOR UNAPPROVED INDICATION [None]
